FAERS Safety Report 5789422-4 (Version None)
Quarter: 2008Q2

REPORT INFORMATION
  Report Type: 
  Country: None (occurrence: None)
  Receive Date: 20080626
  Receipt Date: 20080617
  Transmission Date: 20081010
  Serious: Yes (Other)
  Sender: FDA-Public Use
  Company Number: US-ELI_LILLY_AND_COMPANY-US200806003986

PATIENT
  Age: 58 Year
  Sex: Female

DRUGS (7)
  1. CYMBALTA [Suspect]
     Indication: BACK PAIN
     Dosage: 60 MG, 2/D
     Dates: start: 20050101
  2. LISINOPRIL [Concomitant]
     Dosage: 10 MG, UNK
  3. CELEBREX [Concomitant]
     Dosage: 400 MG, UNK
  4. VITAMIN D [Concomitant]
  5. CALCIUM [Concomitant]
  6. ACTONEL [Concomitant]
  7. FOSAMAX [Concomitant]

REACTIONS (1)
  - BREAST CANCER [None]
